FAERS Safety Report 24588913 (Version 2)
Quarter: 2024Q4

REPORT INFORMATION
  Report Type: Spontaneous
  Country: PH (occurrence: PH)
  Receive Date: 20241107
  Receipt Date: 20241121
  Transmission Date: 20250115
  Serious: Yes (Hospitalization, Other)
  Sender: PFIZER
  Company Number: PH-PFIZER INC-PV202400133779

PATIENT
  Age: 26 Year
  Sex: Female
  Weight: 45 kg

DRUGS (5)
  1. BOSUTINIB [Suspect]
     Active Substance: BOSUTINIB
     Indication: Chronic myeloid leukaemia
     Dosage: 500 MG, (5 X 100 MG TABLETS)
  2. BOSUTINIB [Suspect]
     Active Substance: BOSUTINIB
     Dosage: 300 MG, 1X/DAY
     Route: 048
     Dates: start: 20230403, end: 20231025
  3. BOSUTINIB [Suspect]
     Active Substance: BOSUTINIB
     Dosage: 100 MG, 1X/DAY
     Route: 048
     Dates: start: 20231204
  4. BOSUTINIB [Suspect]
     Active Substance: BOSUTINIB
     Dosage: 200 MG, DAILY
     Route: 048
     Dates: start: 202402
  5. BOSUTINIB [Suspect]
     Active Substance: BOSUTINIB
     Dosage: 300 MG, DAILY
     Route: 048
     Dates: start: 202403

REACTIONS (12)
  - Full blood count decreased [Recovered/Resolved]
  - Platelet count decreased [Unknown]
  - Haematoma [Unknown]
  - Haemoglobin decreased [Unknown]
  - Pancytopenia [Unknown]
  - Nausea [Recovered/Resolved]
  - Diarrhoea [Recovered/Resolved]
  - Abdominal pain upper [Recovered/Resolved]
  - Rash [Recovered/Resolved]
  - Abdominal discomfort [Unknown]
  - Blood alkaline phosphatase increased [Unknown]
  - Alanine aminotransferase increased [Unknown]

NARRATIVE: CASE EVENT DATE: 20230405
